FAERS Safety Report 13925438 (Version 1)
Quarter: 2017Q3

REPORT INFORMATION
  Report Type: Report from Study
  Country: US (occurrence: US)
  Receive Date: 20170831
  Receipt Date: 20170831
  Transmission Date: 20171127
  Serious: Yes (Other)
  Sender: FDA-Public Use
  Company Number: US-JNJFOC-20170602199

PATIENT
  Age: 75 Year
  Sex: Male

DRUGS (13)
  1. ZETIA [Concomitant]
     Active Substance: EZETIMIBE
  2. KLOR-CON [Concomitant]
     Active Substance: POTASSIUM CHLORIDE
  3. LASIX [Concomitant]
     Active Substance: FUROSEMIDE
  4. IMBRUVICA [Suspect]
     Active Substance: IBRUTINIB
     Indication: BURKITT^S LYMPHOMA
     Route: 048
     Dates: start: 20170524
  5. IMBRUVICA [Suspect]
     Active Substance: IBRUTINIB
     Indication: MANTLE CELL LYMPHOMA
     Route: 048
     Dates: start: 20170524
  6. IMBRUVICA [Suspect]
     Active Substance: IBRUTINIB
     Indication: MANTLE CELL LYMPHOMA
     Route: 048
     Dates: start: 20170524
  7. ROSUVASTATIN CALCIUM. [Concomitant]
     Active Substance: ROSUVASTATIN CALCIUM
  8. IMBRUVICA [Suspect]
     Active Substance: IBRUTINIB
     Indication: BURKITT^S LYMPHOMA
     Route: 048
  9. IMBRUVICA [Suspect]
     Active Substance: IBRUTINIB
     Indication: BURKITT^S LYMPHOMA
     Route: 048
     Dates: start: 20170525
  10. SYNTHROID [Concomitant]
     Active Substance: LEVOTHYROXINE SODIUM
  11. IMBRUVICA [Suspect]
     Active Substance: IBRUTINIB
     Indication: BURKITT^S LYMPHOMA
     Route: 048
     Dates: start: 20170524
  12. IMBRUVICA [Suspect]
     Active Substance: IBRUTINIB
     Indication: MANTLE CELL LYMPHOMA
     Route: 048
     Dates: start: 20170525
  13. IMBRUVICA [Suspect]
     Active Substance: IBRUTINIB
     Indication: MANTLE CELL LYMPHOMA
     Route: 048

REACTIONS (10)
  - Product use in unapproved indication [Unknown]
  - Fatigue [Not Recovered/Not Resolved]
  - Alopecia [Not Recovered/Not Resolved]
  - Dizziness [Not Recovered/Not Resolved]
  - Rash [Not Recovered/Not Resolved]
  - Central nervous system lesion [Recovering/Resolving]
  - Diarrhoea [Recovered/Resolved]
  - Disorientation [Not Recovered/Not Resolved]
  - Confusional state [Not Recovered/Not Resolved]
  - Off label use [Unknown]

NARRATIVE: CASE EVENT DATE: 20170524
